FAERS Safety Report 20669830 (Version 3)
Quarter: 2022Q2

REPORT INFORMATION
  Report Type: Report from Study
  Country: AU (occurrence: AU)
  Receive Date: 20220404
  Receipt Date: 20220513
  Transmission Date: 20220721
  Serious: Yes (Hospitalization)
  Sender: FDA-Public Use
  Company Number: AU-PFIZER INC-2021672461

PATIENT
  Age: 42 Year
  Sex: Female
  Weight: 81.1 kg

DRUGS (3)
  1. ABROCITINIB [Suspect]
     Active Substance: ABROCITINIB
     Indication: Eczema
     Dosage: 2 TABLETS, 1X/DAY
     Route: 048
     Dates: start: 20200107, end: 20210530
  2. EFFEXOR XR [Concomitant]
     Active Substance: VENLAFAXINE HYDROCHLORIDE
     Indication: Depression
     Dosage: 1 TABLET, 1X/DAY
     Route: 048
     Dates: start: 20190812
  3. XYLOMETAZOLINE HYDROCHLORIDE [Concomitant]
     Active Substance: XYLOMETAZOLINE HYDROCHLORIDE
     Indication: Seasonal allergy
     Dosage: 2 TABLETS, AS NEEDED
     Route: 048

REACTIONS (2)
  - Ophthalmic herpes simplex [Recovered/Resolved]
  - Periorbital cellulitis [Recovered/Resolved]

NARRATIVE: CASE EVENT DATE: 20210526
